FAERS Safety Report 20371969 (Version 1)
Quarter: 2022Q1

REPORT INFORMATION
  Report Type: Spontaneous
  Country: US (occurrence: US)
  Receive Date: 20220124
  Receipt Date: 20220124
  Transmission Date: 20220424
  Serious: Yes (Hospitalization)
  Sender: FDA-Public Use
  Company Number: US-Fresenius Kabi-FK202200870

PATIENT
  Sex: Female

DRUGS (6)
  1. KETOROLAC TROMETHAMINE [Suspect]
     Active Substance: KETOROLAC TROMETHAMINE
     Indication: Abdominal pain upper
     Route: 030
  2. NAPROXEN [Suspect]
     Active Substance: NAPROXEN
     Indication: Eosinophilic granulomatosis with polyangiitis
     Route: 048
  3. ASPIRIN [Suspect]
     Active Substance: ASPIRIN
     Indication: Drug provocation test
     Route: 048
  4. ASPIRIN [Suspect]
     Active Substance: ASPIRIN
     Route: 048
  5. DICYCLOMINE HYDROCHLORIDE [Concomitant]
     Active Substance: DICYCLOMINE HYDROCHLORIDE
     Indication: Duodenitis
     Route: 030
  6. DICYCLOMINE HYDROCHLORIDE [Concomitant]
     Active Substance: DICYCLOMINE HYDROCHLORIDE
     Route: 048

REACTIONS (3)
  - Respiratory failure [Recovered/Resolved]
  - Aspirin-exacerbated respiratory disease [Recovered/Resolved]
  - Hypersensitivity [Recovered/Resolved]
